FAERS Safety Report 5196858-1 (Version None)
Quarter: 2006Q4

REPORT INFORMATION
  Report Type: 
  Country: None (occurrence: None)
  Receive Date: 20061227
  Receipt Date: 20061213
  Transmission Date: 20070319
  Serious: Yes (Other)
  Sender: FDA-Public Use
  Company Number: 2006154884

PATIENT
  Age: 40 Year
  Sex: Female

DRUGS (7)
  1. SERTRALINE [Suspect]
     Dosage: 50 MG
  2. METOCLOPRAMIDE [Suspect]
     Indication: POST PROCEDURAL NAUSEA
     Dosage: 10 MG, ONCE, INTRAVENOUS
     Route: 042
  3. MOXIFLOXACIN [Suspect]
     Indication: PNEUMONIA
  4. SULFAMETHOXAZOLE [Concomitant]
  5. ACYCLOVIR [Concomitant]
  6. ALLOPURINOL [Concomitant]
  7. FAMOTIDINE [Concomitant]

REACTIONS (1)
  - CHOREA [None]
